FAERS Safety Report 6233537-3 (Version None)
Quarter: 2009Q2

REPORT INFORMATION
  Report Type: 
  Country: None (occurrence: None)
  Receive Date: 20090617
  Receipt Date: 20090610
  Transmission Date: 20091009
  Serious: Yes (Hospitalization)
  Sender: FDA-Public Use
  Company Number: US-GILEAD-2009-0021653

PATIENT
  Sex: Male
  Weight: 72.05 kg

DRUGS (13)
  1. LETAIRIS [Suspect]
     Indication: PULMONARY ARTERIAL HYPERTENSION
     Route: 048
     Dates: start: 20080124
  2. METOPROLOL SUCCINATE [Concomitant]
  3. SYNTHROID [Concomitant]
  4. TRACOLIMUS POWDER [Concomitant]
  5. OXYCONTIN [Concomitant]
  6. ZOFRAN [Concomitant]
  7. AMBIEN [Concomitant]
  8. FOLIC ACID [Concomitant]
  9. PHOSLO [Concomitant]
  10. CALCIUM + VITAMIN D [Concomitant]
  11. MAGNESIUM OXIDE [Concomitant]
  12. QUININE [Concomitant]
  13. DOCUSATE [Concomitant]

REACTIONS (1)
  - STAPHYLOCOCCAL INFECTION [None]
